FAERS Safety Report 9513496 (Version 1)
Quarter: 2013Q3

REPORT INFORMATION
  Report Type: Spontaneous
  Country: US (occurrence: US)
  Receive Date: 20130910
  Receipt Date: 20130910
  Transmission Date: 20140515
  Serious: No
  Sender: FDA-Public Use
  Company Number: US-TARO-2013P1006377

PATIENT
  Age: 83 Year
  Sex: Female
  Weight: 60.33 kg

DRUGS (5)
  1. WARFARIN SODIUM TABLETS USP 4MG [Suspect]
     Indication: ATRIAL FIBRILLATION
     Route: 048
     Dates: start: 2010, end: 20130418
  2. WARFARIN SODIUM TABLETS USP 4MG [Suspect]
     Indication: ATRIAL FIBRILLATION
     Route: 048
     Dates: start: 20130418
  3. FOSAMAX [Concomitant]
  4. RANITIDINE [Concomitant]
  5. CORDARONE [Concomitant]

REACTIONS (2)
  - International normalised ratio decreased [Not Recovered/Not Resolved]
  - Medication error [Not Recovered/Not Resolved]
